FAERS Safety Report 20079614 (Version 3)
Quarter: 2021Q4

REPORT INFORMATION
  Report Type: Spontaneous
  Country: CO (occurrence: CO)
  Receive Date: 20211117
  Receipt Date: 20211220
  Transmission Date: 20220303
  Serious: Yes (Other)
  Sender: FDA-Public Use
  Company Number: CO-GLAXOSMITHKLINE-CO2021AMR199832

PATIENT
  Age: 43 Year
  Sex: Female
  Weight: 50 kg

DRUGS (11)
  1. BELIMUMAB [Suspect]
     Active Substance: BELIMUMAB
     Indication: Lupus-like syndrome
     Dosage: 520 MG, Z EVERY 28 DAYS
     Dates: start: 20210504
  2. BELIMUMAB [Suspect]
     Active Substance: BELIMUMAB
     Dosage: 520 MG, Z EVERY 28 DAYS
     Dates: start: 20210917
  3. BELIMUMAB [Suspect]
     Active Substance: BELIMUMAB
     Dosage: 520 MG
  4. BELIMUMAB [Suspect]
     Active Substance: BELIMUMAB
     Indication: Lupus-like syndrome
     Dosage: 520 MG
  5. METHOTREXATE [Concomitant]
     Active Substance: METHOTREXATE
     Indication: Product used for unknown indication
     Dosage: UNK
  6. PREDNISOLONE [Concomitant]
     Active Substance: PREDNISOLONE
     Indication: Product used for unknown indication
     Dosage: 5 MG EVERY 24 HOURS
  7. HYDROXYCHLOROQUINE [Concomitant]
     Active Substance: HYDROXYCHLOROQUINE
     Indication: Product used for unknown indication
     Dosage: 200 MG, EVERY 24 HOURS
  8. CALCIUM CARBONATE\VITAMIN D [Concomitant]
     Active Substance: CALCIUM CARBONATE\VITAMIN D
     Indication: Product used for unknown indication
     Dosage: 800 MG+ 2000 IU, EVERY 24 HOURS
  9. LEVOTHYROXINE [Concomitant]
     Active Substance: LEVOTHYROXINE
     Indication: Product used for unknown indication
     Dosage: 200 MG, EVERY 24 HOURS
  10. HYDROCODONE BITARTRATE [Concomitant]
     Active Substance: HYDROCODONE BITARTRATE
     Indication: Product used for unknown indication
     Dosage: 5 MG, EVERY 24 HOURS
  11. ACETAMINOPHEN [Concomitant]
     Active Substance: ACETAMINOPHEN
     Indication: Product used for unknown indication
     Dosage: 325 MG, EVERY 24 HOURS

REACTIONS (11)
  - Mastitis [Not Recovered/Not Resolved]
  - Neutropenia [Not Recovered/Not Resolved]
  - Thrombocytopenia [Not Recovered/Not Resolved]
  - White blood cell count increased [Not Recovered/Not Resolved]
  - Breast inflammation [Not Recovered/Not Resolved]
  - Breast pain [Not Recovered/Not Resolved]
  - Leukocytosis [Not Recovered/Not Resolved]
  - Petechiae [Not Recovered/Not Resolved]
  - Arthropathy [Not Recovered/Not Resolved]
  - Arthralgia [Not Recovered/Not Resolved]
  - Cyclic neutropenia [Not Recovered/Not Resolved]

NARRATIVE: CASE EVENT DATE: 20210820
